FAERS Safety Report 19100270 (Version 2)
Quarter: 2021Q2

REPORT INFORMATION
  Report Type: Spontaneous
  Country: US (occurrence: US)
  Receive Date: 20210407
  Receipt Date: 20210416
  Transmission Date: 20210717
  Serious: Yes (Other)
  Sender: FDA-Public Use
  Company Number: US-AUROBINDO-AUR-APL-2021-013505

PATIENT
  Age: 15 Year
  Sex: Male

DRUGS (14)
  1. ETOPOSIDE. [Suspect]
     Active Substance: ETOPOSIDE
     Indication: HAEMOPHAGOCYTIC LYMPHOHISTIOCYTOSIS
     Dosage: 150 MILLIGRAM/SQ. METER, EVERY WEEK (ON WEEK 1, 4, 6)
     Route: 065
  2. ETOPOSIDE. [Suspect]
     Active Substance: ETOPOSIDE
     Dosage: 75 MILLIGRAM/SQ. METER, EVERY WEEK (WEEK 2 (50% DOSE))
     Route: 065
  3. EMAPALUMAB [Suspect]
     Active Substance: EMAPALUMAB
     Indication: HAEMOPHAGOCYTIC LYMPHOHISTIOCYTOSIS
     Dosage: 2.7 MILLIGRAM/KILOGRAM (2.7 MG/KG/DOSE TWICE A WEEK (WEEK 4 AND 5, 8, 9))
     Route: 065
  4. DEXAMETHASONE. [Suspect]
     Active Substance: DEXAMETHASONE
     Dosage: 10 MILLIGRAM/SQ. METER (WEEK 1, 2, 3, 4)
     Route: 065
  5. POSACONAZOLE [Concomitant]
     Active Substance: POSACONAZOLE
     Indication: PROPHYLAXIS
     Dosage: UNK
     Route: 065
  6. DEXAMETHASONE. [Suspect]
     Active Substance: DEXAMETHASONE
     Indication: HAEMOPHAGOCYTIC LYMPHOHISTIOCYTOSIS
     Dosage: 5 MILLIGRAM/SQ. METER (WEEK 5, 6)
     Route: 065
  7. DEXAMETHASONE. [Suspect]
     Active Substance: DEXAMETHASONE
     Dosage: 10 MILLIGRAM/SQ. METER (WEEK 9?14)
     Route: 065
  8. EMAPALUMAB [Suspect]
     Active Substance: EMAPALUMAB
     Dosage: 4.6 MILLIGRAM/KILOGRAM (TWICE A WEEK (WEEK 10 AND11))
     Route: 065
  9. METHOTREXATE. [Concomitant]
     Active Substance: METHOTREXATE
     Indication: NERVOUS SYSTEM DISORDER PROPHYLAXIS
     Dosage: 10 MILLIGRAM, EVERY WEEK (ON WEEK 2, 3, 4, 5, 10 AND 11)
     Route: 037
  10. ETOPOSIDE. [Suspect]
     Active Substance: ETOPOSIDE
     Dosage: 150 MILLIGRAM/SQ. METER (WEEK 5 (TWICE WEEKLY))
     Route: 065
  11. DEXAMETHASONE. [Suspect]
     Active Substance: DEXAMETHASONE
     Dosage: 2.7 MILLIGRAM/SQ. METER (WEEK 7, 8)
     Route: 065
  12. EMAPALUMAB [Suspect]
     Active Substance: EMAPALUMAB
     Dosage: 2.7 MILLIGRAM/KILOGRAM, EVERY WEEK (2.7 MG/KG/DOSE ONCE A WEEK (WEEK 6))
     Route: 065
  13. METHOTREXATE. [Concomitant]
     Active Substance: METHOTREXATE
     Indication: HAEMOPHAGOCYTIC LYMPHOHISTIOCYTOSIS
  14. PENTAMIDINE [Concomitant]
     Active Substance: PENTAMIDINE
     Indication: PROPHYLAXIS
     Dosage: UNK
     Route: 065

REACTIONS (2)
  - Musculoskeletal chest pain [Recovered/Resolved]
  - Staphylococcal bacteraemia [Recovered/Resolved]
